FAERS Safety Report 23963432 (Version 1)
Quarter: 2024Q2

REPORT INFORMATION
  Report Type: Spontaneous
  Country: RS (occurrence: RS)
  Receive Date: 20240611
  Receipt Date: 20240611
  Transmission Date: 20240715
  Serious: Yes (Death, Other)
  Sender: FDA-Public Use
  Company Number: RS-002147023-NVSC2024RS098246

PATIENT
  Sex: Female

DRUGS (3)
  1. KISQALI [Suspect]
     Active Substance: RIBOCICLIB
     Indication: Hormone receptor positive breast cancer
     Dosage: 600 MG
     Route: 065
     Dates: start: 20210120, end: 202306
  2. KISQALI [Suspect]
     Active Substance: RIBOCICLIB
     Indication: HER2 positive breast cancer
     Dosage: 400 MG, QD
     Route: 065
     Dates: start: 202203
  3. FASLODEX [Concomitant]
     Active Substance: FULVESTRANT
     Indication: Product used for unknown indication
     Dosage: 500 MG (EVERY 28 DAYS)
     Route: 065
     Dates: start: 20210120, end: 202306

REACTIONS (4)
  - Hormone receptor positive breast cancer [Fatal]
  - HER2 positive breast cancer [Fatal]
  - Malignant neoplasm progression [Fatal]
  - Neutropenia [Recovering/Resolving]

NARRATIVE: CASE EVENT DATE: 20210601
